FAERS Safety Report 4802138-3 (Version None)
Quarter: 2005Q4

REPORT INFORMATION
  Report Type: 
  Country: None (occurrence: None)
  Receive Date: 20051018
  Receipt Date: 20051010
  Transmission Date: 20060501
  Serious: Yes (Other)
  Sender: FDA-Public Use
  Company Number: PHEH2005US11348

PATIENT
  Age: 63 Year
  Sex: Female

DRUGS (1)
  1. FEMARA [Suspect]
     Indication: BREAST CANCER
     Dosage: 2.5 MG, QD
     Route: 048
     Dates: start: 20041001, end: 20051007

REACTIONS (8)
  - ARTHRALGIA [None]
  - ASTHENIA [None]
  - BONE DENSITY DECREASED [None]
  - GRIP STRENGTH DECREASED [None]
  - OSTEOARTHRITIS [None]
  - SWELLING [None]
  - SYNOVITIS [None]
  - TOE DEFORMITY [None]
